FAERS Safety Report 17408595 (Version 5)
Quarter: 2020Q4

REPORT INFORMATION
  Report Type: Spontaneous
  Country: JP (occurrence: JP)
  Receive Date: 20200212
  Receipt Date: 20201223
  Transmission Date: 20210113
  Serious: Yes (Life-Threatening, Hospitalization, Other)
  Sender: FDA-Public Use
  Company Number: JP-009507513-1912JPN001896J

PATIENT
  Age: 93 Year
  Sex: Male
  Weight: 46 kg

DRUGS (1)
  1. KEYTRUDA [Suspect]
     Active Substance: PEMBROLIZUMAB
     Indication: LUNG ADENOCARCINOMA STAGE IV
     Dosage: 200 MILLIGRAM, Q3W
     Route: 041
     Dates: start: 20191112, end: 20191112

REACTIONS (2)
  - Immune-mediated myocarditis [Recovered/Resolved]
  - Myasthenia gravis [Unknown]

NARRATIVE: CASE EVENT DATE: 20191204
